FAERS Safety Report 22055606 (Version 1)
Quarter: 2023Q1

REPORT INFORMATION
  Report Type: Spontaneous
  Country: US (occurrence: US)
  Receive Date: 20230302
  Receipt Date: 20230302
  Transmission Date: 20230418
  Serious: Yes (Other)
  Sender: FDA-Public Use
  Company Number: US-PFIZER INC-202300086486

PATIENT
  Age: 71 Year
  Sex: Female
  Weight: 65.77 kg

DRUGS (1)
  1. PAXLOVID [Suspect]
     Active Substance: NIRMATRELVIR\RITONAVIR
     Indication: COVID-19 treatment
     Dosage: UNK
     Dates: start: 20230225

REACTIONS (4)
  - Nausea [Not Recovered/Not Resolved]
  - Vomiting [Unknown]
  - Dysgeusia [Not Recovered/Not Resolved]
  - Yellow skin [Not Recovered/Not Resolved]

NARRATIVE: CASE EVENT DATE: 20230226
